FAERS Safety Report 14336681 (Version 5)
Quarter: 2018Q4

REPORT INFORMATION
  Report Type: Report from Study
  Country: DE (occurrence: DE)
  Receive Date: 20171229
  Receipt Date: 20181005
  Transmission Date: 20190204
  Serious: Yes (Hospitalization, Other)
  Sender: FDA-Public Use
  Company Number: PHHY2017DE056238

PATIENT
  Sex: Female
  Weight: 88 kg

DRUGS (33)
  1. ATMADISC [Concomitant]
     Active Substance: FLUTICASONE PROPIONATE\SALMETEROL XINAFOATE
     Indication: ASTHMA
     Dosage: 50 MG, BID
     Route: 055
     Dates: start: 20170428
  2. DOXEPIN [Concomitant]
     Active Substance: DOXEPIN
     Indication: HYPERTENSION
     Dosage: 100 MG, QD
     Route: 048
     Dates: start: 20170428
  3. CAPROS [Concomitant]
     Indication: PAIN
     Dosage: 10 MG, PRN
     Route: 048
     Dates: start: 20161214
  4. TILIDIN ^RATIOPHARM^ [Concomitant]
     Active Substance: NALOXONE HYDROCHLORIDE\TILIDINE HYDROCHLORIDE
     Indication: PAIN
     Dosage: 150 MG, TID
     Route: 048
     Dates: start: 20161205
  5. ZOPICLON [Concomitant]
     Active Substance: ZOPICLONE
     Indication: SLEEP DISORDER
     Dosage: 3.75 MG, QD
     Route: 048
     Dates: start: 20161213, end: 20170401
  6. CALCIUM D3 [Concomitant]
     Active Substance: CALCIUM\CHOLECALCIFEROL
     Indication: PROPHYLAXIS
     Dosage: 600 MG, QD
     Route: 048
     Dates: start: 20161110
  7. AMLODIPIN [Concomitant]
     Active Substance: AMLODIPINE BESYLATE
     Dosage: 10 MG, QD
     Route: 048
     Dates: start: 20170606
  8. VALSARTAN. [Concomitant]
     Active Substance: VALSARTAN
     Indication: HYPERTENSION
     Dosage: 80 MG, QD
     Route: 048
     Dates: start: 20161214, end: 20170401
  9. CARVEDILOL-RATIOPHARM [Concomitant]
     Dosage: 12.5 MG, BID
     Route: 048
     Dates: start: 20171002
  10. LAXOBERAL [Concomitant]
     Active Substance: SODIUM PICOSULFATE
     Indication: CONSTIPATION
     Dosage: 25 OT, PRN
     Route: 048
     Dates: start: 20170127
  11. DEKRISTOL [Concomitant]
     Active Substance: CHOLECALCIFEROL
     Indication: HYPERPARATHYROIDISM SECONDARY
     Dosage: 2000 IU, QD
     Route: 048
     Dates: start: 20130101
  12. JANUVIA [Concomitant]
     Active Substance: SITAGLIPTIN PHOSPHATE
     Indication: TYPE 2 DIABETES MELLITUS
     Dosage: 50 MG, QD
     Route: 048
     Dates: start: 20170215
  13. XGEVA [Concomitant]
     Active Substance: DENOSUMAB
     Indication: PROPHYLAXIS
     Dosage: 120 MG, QMO
     Route: 058
     Dates: start: 20180205
  14. VOTRIENT [Suspect]
     Active Substance: PAZOPANIB HYDROCHLORIDE
     Indication: METASTATIC RENAL CELL CARCINOMA
     Dosage: 400 MG, QD
     Route: 048
     Dates: start: 20161216, end: 20170427
  15. HCT-BETA [Concomitant]
     Indication: HYPERTENSION
     Dosage: 12.5 MG, QD
     Route: 048
     Dates: start: 20161214
  16. PANTOPRAZOLE [Concomitant]
     Active Substance: PANTOPRAZOLE
     Indication: PROPHYLAXIS
     Dosage: 40 MG, QD
     Route: 048
     Dates: start: 20161215, end: 20170401
  17. VOTRIENT [Suspect]
     Active Substance: PAZOPANIB HYDROCHLORIDE
     Dosage: 400 MG, UNK
     Route: 048
     Dates: start: 20171020, end: 20171022
  18. ASS-RATIOPHARM [Concomitant]
     Active Substance: ASPIRIN
     Indication: PERIPHERAL ARTERIAL OCCLUSIVE DISEASE
     Dosage: 100 MG, QD
     Route: 048
     Dates: start: 20100101
  19. AMLODIPIN [Concomitant]
     Active Substance: AMLODIPINE BESYLATE
     Indication: HYPERTENSION
     Dosage: 5 MG, QD
     Route: 048
     Dates: start: 20161215
  20. VALSARTAN. [Concomitant]
     Active Substance: VALSARTAN
     Dosage: 160 MG, QD
     Route: 048
     Dates: start: 20170428, end: 20170606
  21. HCT-BETA [Concomitant]
     Dosage: 25 MG, QD
     Route: 048
     Dates: start: 20170606
  22. VALSARTAN. [Concomitant]
     Active Substance: VALSARTAN
     Dosage: 320 MG, QD
     Route: 048
     Dates: start: 20170606
  23. CARVEDILOL-RATIOPHARM [Concomitant]
     Indication: HYPERTENSION
     Dosage: 6.25 MG, BID
     Route: 048
     Dates: start: 20161213, end: 20170401
  24. CARVEDILOL-RATIOPHARM [Concomitant]
     Indication: HYPERTENSIVE CRISIS
     Dosage: 6.25 MG, BID
     Route: 048
     Dates: start: 20170606
  25. NIFEDIPINE ^RATIOPHARM^ [Concomitant]
     Active Substance: NIFEDIPINE
     Indication: HYPERTENSION
     Dosage: 5 MG, PRN
     Route: 048
     Dates: start: 20161213
  26. VOTRIENT [Suspect]
     Active Substance: PAZOPANIB HYDROCHLORIDE
     Dosage: 400 MG, QD
     Route: 048
     Dates: start: 20170428, end: 20170804
  27. VOTRIENT [Suspect]
     Active Substance: PAZOPANIB HYDROCHLORIDE
     Dosage: 400 MG, QD
     Route: 048
     Dates: start: 20170820, end: 20171019
  28. MOXONIDIN RATIOPHARM [Concomitant]
     Indication: HYPERTENSION
     Dosage: 0.6 MG, QD
     Route: 048
     Dates: start: 20161213
  29. VIANI [Concomitant]
     Active Substance: FLUTICASONE PROPIONATE\SALMETEROL XINAFOATE
     Indication: ASTHMA
     Dosage: 25 UG, BID
     Route: 055
     Dates: start: 20060101, end: 20170401
  30. MEBEVERINE [Concomitant]
     Active Substance: MEBEVERINE
     Indication: IRRITABLE BOWEL SYNDROME
     Dosage: 135 MG, BID
     Route: 048
     Dates: start: 20060101, end: 20170606
  31. MEBEVERINE [Concomitant]
     Active Substance: MEBEVERINE
     Dosage: 135 MG, BID
     Route: 048
     Dates: start: 20171004
  32. MOVENTIG [Concomitant]
     Active Substance: NALOXEGOL OXALATE
     Indication: CONSTIPATION
     Dosage: 25 MG, QD
     Route: 048
     Dates: start: 20161216, end: 20170606
  33. MACROGOL [Concomitant]
     Active Substance: POLYETHYLENE GLYCOLS
     Indication: CONSTIPATION
     Dosage: 351 MG, BID
     Route: 048
     Dates: start: 20060101

REACTIONS (17)
  - Dyspnoea [Recovering/Resolving]
  - Infected skin ulcer [Recovered/Resolved with Sequelae]
  - Pulmonary oedema [Recovering/Resolving]
  - Pain in extremity [Not Recovered/Not Resolved]
  - Hypertension [Not Recovered/Not Resolved]
  - Cardiac dysfunction [Unknown]
  - Hypercholesterolaemia [Not Recovered/Not Resolved]
  - Urinary tract infection [Unknown]
  - Metabolic acidosis [Recovered/Resolved]
  - Urinary tract infection [Recovered/Resolved]
  - Febrile infection [Recovered/Resolved]
  - Staphylococcus test positive [Recovered/Resolved]
  - Hypertensive crisis [Recovering/Resolving]
  - Pyrexia [Recovered/Resolved]
  - Hyperkalaemia [Recovered/Resolved]
  - Intercostal neuralgia [Recovered/Resolved]
  - Skin fissures [Not Recovered/Not Resolved]

NARRATIVE: CASE EVENT DATE: 20161216
